FAERS Safety Report 5531455-7 (Version None)
Quarter: 2007Q4

REPORT INFORMATION
  Report Type: 
  Country: None (occurrence: None)
  Receive Date: 20071128
  Receipt Date: 20071128
  Transmission Date: 20080405
  Serious: Yes (Hospitalization, Other)
  Sender: FDA-Public Use
  Company Number: None

PATIENT
  Age: 59 Year
  Sex: Male
  Weight: 83.9154 kg

DRUGS (1)
  1. CHANTIX [Suspect]
     Indication: SMOKING CESSATION THERAPY
     Dosage: 0.5MG 2X4DAYS/1X3DAYS PO
     Route: 048
     Dates: start: 20070414, end: 20070421

REACTIONS (2)
  - CONDITION AGGRAVATED [None]
  - CONVULSION [None]
